FAERS Safety Report 7685215-1 (Version None)
Quarter: 2011Q3

REPORT INFORMATION
  Report Type: 
  Country: None (occurrence: None)
  Receive Date: 20110816
  Receipt Date: 20110808
  Transmission Date: 20111222
  Serious: Yes (Death, Other)
  Sender: FDA-Public Use
  Company Number: US-CELGENEUS-163-21880-11052476

PATIENT
  Sex: Male

DRUGS (20)
  1. REVLIMID [Suspect]
     Dosage: 5 MILLIGRAM
     Route: 048
     Dates: start: 20090313
  2. PRILOSEC [Concomitant]
     Route: 065
  3. ATIVAN [Concomitant]
     Route: 065
  4. LORTAB [Concomitant]
     Dosage: 10 MILLIGRAM
     Route: 065
  5. NAPROXEN [Concomitant]
     Dosage: 220 MILLIGRAM
     Route: 065
  6. MULTIVITAMIN COMPLETE [Concomitant]
     Route: 065
  7. POTASSIUM CHLORIDE [Concomitant]
     Route: 065
  8. MUSCLE RELAXER [Concomitant]
     Route: 065
  9. PAREGORIC [Concomitant]
     Route: 065
  10. ZOFRAN [Concomitant]
     Indication: NAUSEA
     Dosage: 8 MILLIGRAM
     Route: 065
  11. PROSCAR [Concomitant]
     Route: 065
  12. LORAZEPAM [Concomitant]
     Dosage: .5 MILLIGRAM
     Route: 065
  13. SPIRIVA [Concomitant]
     Route: 055
  14. TARCEVA [Concomitant]
     Dosage: VARIABLE DOSE
     Route: 065
     Dates: start: 20100816
  15. NEUPOGEN [Concomitant]
     Dosage: 480 MICROGRAM
     Route: 058
  16. OMEPRAZOLE [Concomitant]
     Dosage: 20 MILLIGRAM
     Route: 065
  17. ASPIRIN [Concomitant]
     Route: 065
  18. DEXAMETHASONE [Concomitant]
     Route: 065
  19. TERAZOSIN HCL [Concomitant]
     Dosage: 5 MILLIGRAM
     Route: 065
  20. LASIX [Concomitant]
     Dosage: 40 MILLIGRAM
     Route: 065

REACTIONS (3)
  - DEATH [None]
  - DISEASE PROGRESSION [None]
  - LUNG ADENOCARCINOMA [None]
